FAERS Safety Report 5144684-1 (Version None)
Quarter: 2006Q4

REPORT INFORMATION
  Report Type: 
  Country: None (occurrence: None)
  Receive Date: 20061031
  Receipt Date: 20061019
  Transmission Date: 20070319
  Serious: Yes (Hospitalization)
  Sender: FDA-Public Use
  Company Number: SOS-2006-032

PATIENT
  Age: 51 Year
  Sex: Female

DRUGS (1)
  1. DISULFIRAM [Suspect]
     Indication: ALCOHOLISM
     Dosage: 250 MG/DAY

REACTIONS (22)
  - AGITATION [None]
  - ALCOHOL USE [None]
  - ALCOHOLISM [None]
  - ANXIETY [None]
  - CEREBRAL DISORDER [None]
  - COMMUNICATION DISORDER [None]
  - CONFUSIONAL STATE [None]
  - DECREASED APPETITE [None]
  - DELIRIUM [None]
  - DISORIENTATION [None]
  - DISTURBANCE IN ATTENTION [None]
  - ELECTROENCEPHALOGRAM ABNORMAL [None]
  - FEAR [None]
  - HYPERREFLEXIA [None]
  - IRRITABILITY [None]
  - MAJOR DEPRESSION [None]
  - SCREAMING [None]
  - SINUS TACHYCARDIA [None]
  - SPEECH DISORDER [None]
  - SUICIDAL IDEATION [None]
  - THOUGHT BLOCKING [None]
  - TRANSAMINASES INCREASED [None]
